FAERS Safety Report 23874030 (Version 8)
Quarter: 2024Q3

REPORT INFORMATION
  Report Type: Spontaneous
  Country: CA (occurrence: CA)
  Receive Date: 20240520
  Receipt Date: 20240904
  Transmission Date: 20241017
  Serious: Yes (Hospitalization, Other)
  Sender: PFIZER
  Company Number: CA-PFIZER INC-202400122739

PATIENT
  Age: 77 Year
  Sex: Female

DRUGS (7)
  1. RUXIENCE [Suspect]
     Active Substance: RITUXIMAB-PVVR
     Indication: Rheumatoid arthritis
     Dosage: 1000 MG, DAY 1 AND DAY 15
     Route: 042
     Dates: start: 20231222, end: 20240105
  2. ASPIRIN [Concomitant]
     Active Substance: ASPIRIN
     Dosage: 1 DF
  3. ARAVA [Concomitant]
     Active Substance: LEFLUNOMIDE
     Dosage: 1 DF
  4. FUROSEMIDE [Concomitant]
     Active Substance: FUROSEMIDE
     Dosage: 1 DF
  5. PANTOPRAZOLE [Concomitant]
     Active Substance: PANTOPRAZOLE
     Dosage: 1 DF
  6. PREDNISONE [Concomitant]
     Active Substance: PREDNISONE
     Dosage: 15 MG
  7. SULFASALAZINE [Concomitant]
     Active Substance: SULFASALAZINE
     Indication: Rheumatoid arthritis
     Dosage: 1 DF, DOSAGE NOT AVAILABLE
     Route: 065

REACTIONS (19)
  - Diarrhoea haemorrhagic [Not Recovered/Not Resolved]
  - Haematochezia [Not Recovered/Not Resolved]
  - Osteoporosis [Not Recovered/Not Resolved]
  - Spinal compression fracture [Not Recovered/Not Resolved]
  - Rib fracture [Not Recovered/Not Resolved]
  - Blindness [Not Recovered/Not Resolved]
  - Immunosuppression [Unknown]
  - Renal impairment [Not Recovered/Not Resolved]
  - Intestinal ulcer [Not Recovered/Not Resolved]
  - Rectal haemorrhage [Unknown]
  - Condition aggravated [Not Recovered/Not Resolved]
  - Respiratory disorder [Not Recovered/Not Resolved]
  - Back pain [Not Recovered/Not Resolved]
  - Abdominal pain [Not Recovered/Not Resolved]
  - Decreased appetite [Not Recovered/Not Resolved]
  - Muscle spasms [Not Recovered/Not Resolved]
  - Constipation [Not Recovered/Not Resolved]
  - Heart rate increased [Not Recovered/Not Resolved]
  - Ulcer [Not Recovered/Not Resolved]

NARRATIVE: CASE EVENT DATE: 20240101
